FAERS Safety Report 24541138 (Version 3)
Quarter: 2025Q1

REPORT INFORMATION
  Report Type: Spontaneous
  Country: JP (occurrence: JP)
  Receive Date: 20241023
  Receipt Date: 20250210
  Transmission Date: 20250409
  Serious: Yes (Other)
  Sender: ALEXION PHARMACEUTICALS
  Company Number: JP-ASTRAZENECA-240069447_013020_P_1

PATIENT
  Age: 58 Year

DRUGS (16)
  1. TAGRISSO [Suspect]
     Active Substance: OSIMERTINIB
  2. TAGRISSO [Suspect]
     Active Substance: OSIMERTINIB
     Dosage: 80 MILLIGRAM, QD
  3. CARBOPLATIN [Concomitant]
     Active Substance: CARBOPLATIN
     Indication: Non-small cell lung cancer
     Route: 065
  4. CARBOPLATIN [Concomitant]
     Active Substance: CARBOPLATIN
     Route: 065
  5. CARBOPLATIN [Concomitant]
     Active Substance: CARBOPLATIN
     Route: 065
  6. CARBOPLATIN [Concomitant]
     Active Substance: CARBOPLATIN
     Route: 065
  7. CARBOPLATIN [Concomitant]
     Active Substance: CARBOPLATIN
     Route: 065
  8. CARBOPLATIN [Concomitant]
     Active Substance: CARBOPLATIN
     Route: 065
  9. CARBOPLATIN [Concomitant]
     Active Substance: CARBOPLATIN
     Route: 065
  10. CARBOPLATIN [Concomitant]
     Active Substance: CARBOPLATIN
     Route: 065
  11. PEMETREXED [Concomitant]
     Active Substance: PEMETREXED
     Indication: Non-small cell lung cancer
     Route: 065
  12. PEMETREXED [Concomitant]
     Active Substance: PEMETREXED
     Route: 065
  13. PEMETREXED [Concomitant]
     Active Substance: PEMETREXED
     Route: 065
  14. PEMETREXED [Concomitant]
     Active Substance: PEMETREXED
     Route: 065
  15. PEMETREXED [Concomitant]
     Active Substance: PEMETREXED
     Route: 065
  16. PEMETREXED [Concomitant]
     Active Substance: PEMETREXED
     Route: 065

REACTIONS (2)
  - Hepatic function abnormal [Recovered/Resolved]
  - Pyrexia [Not Recovered/Not Resolved]
